FAERS Safety Report 6307509-4 (Version None)
Quarter: 2009Q3

REPORT INFORMATION
  Report Type: 
  Country: None (occurrence: None)
  Receive Date: 20090813
  Receipt Date: 20090731
  Transmission Date: 20100115
  Serious: Yes (Other)
  Sender: FDA-Public Use
  Company Number: US-BRISTOL-MYERS SQUIBB COMPANY-14736813

PATIENT
  Sex: Male

DRUGS (1)
  1. MEGACE [Suspect]
     Indication: DECREASED APPETITE

REACTIONS (1)
  - CEREBROVASCULAR ACCIDENT [None]
